FAERS Safety Report 18108342 (Version 1)
Quarter: 2020Q3

REPORT INFORMATION
  Report Type: Spontaneous
  Country: HR (occurrence: HR)
  Receive Date: 20200804
  Receipt Date: 20200804
  Transmission Date: 20201103
  Serious: Yes (Other)
  Sender: FDA-Public Use
  Company Number: HR-ASTRAZENECA-2020SE94365

PATIENT
  Age: 20 Year
  Sex: Male

DRUGS (4)
  1. RIVOTRIL [Suspect]
     Active Substance: CLONAZEPAM
     Dosage: DF = 1 BOTTLE DRUNK 3 VIALS (DAILY)
     Route: 048
     Dates: start: 20200415, end: 20200415
  2. PROPRANOLOL [Suspect]
     Active Substance: PROPRANOLOL HYDROCHLORIDE
     Dosage: 40 MG, A HANDFUL OF TABLETS (10 TABLET)
     Route: 048
     Dates: start: 20200415, end: 20200415
  3. DORETA [Suspect]
     Active Substance: ACETAMINOPHEN\TRAMADOL HYDROCHLORIDE
     Dosage: DF = 1 TABLET 6 TABLET DORET
     Route: 048
     Dates: start: 20200415, end: 20200415
  4. KVENTIAX SR (QUETIAPINE FUMARATE) [Suspect]
     Active Substance: QUETIAPINE FUMARATE
     Route: 048
     Dates: start: 20200415, end: 20200415

REACTIONS (3)
  - Intentional overdose [Unknown]
  - Somnolence [Unknown]
  - Suicide attempt [Unknown]

NARRATIVE: CASE EVENT DATE: 20200415
